FAERS Safety Report 25410641 (Version 1)
Quarter: 2025Q2

REPORT INFORMATION
  Report Type: Spontaneous
  Country: US (occurrence: US)
  Receive Date: 20250609
  Receipt Date: 20250609
  Transmission Date: 20250716
  Serious: No
  Sender: APOTEX
  Company Number: US-APOTEX-2025AP008004

PATIENT

DRUGS (1)
  1. BUDESONIDE [Suspect]
     Active Substance: BUDESONIDE
     Indication: Olfactory dysfunction
     Dosage: UNK, BID
     Route: 045

REACTIONS (2)
  - Hyperglycaemia [Unknown]
  - Headache [Unknown]
